FAERS Safety Report 5327479-5 (Version None)
Quarter: 2007Q2

REPORT INFORMATION
  Report Type: 
  Country: None (occurrence: None)
  Receive Date: 20070517
  Receipt Date: 20070131
  Transmission Date: 20071010
  Serious: Yes (Other)
  Sender: FDA-Public Use
  Company Number: US-JNJFOC-20070103265

PATIENT
  Age: 32 Year
  Sex: Female

DRUGS (4)
  1. TRAMADOL HCL [Suspect]
     Indication: SUICIDAL BEHAVIOUR
     Route: 048
  2. METHOCARBAMOL [Suspect]
     Indication: SUICIDAL BEHAVIOUR
     Route: 065
  3. TRAZODONE HCL [Suspect]
     Indication: SUICIDAL BEHAVIOUR
     Route: 065
  4. BENZO [Suspect]
     Indication: SUICIDAL BEHAVIOUR
     Route: 065

REACTIONS (3)
  - CONVULSION [None]
  - RESPIRATORY DEPRESSION [None]
  - SUICIDE ATTEMPT [None]
